FAERS Safety Report 5969438-5 (Version None)
Quarter: 2008Q4

REPORT INFORMATION
  Report Type: 
  Country: None (occurrence: None)
  Receive Date: 20081126
  Receipt Date: 20080905
  Transmission Date: 20090506
  Serious: No
  Sender: FDA-Public Use
  Company Number: US-ABBOTT-08P-163-0474402-00

PATIENT
  Sex: Male
  Weight: 69.462 kg

DRUGS (3)
  1. SIMCOR [Suspect]
     Indication: BLOOD CHOLESTEROL INCREASED
     Dosage: 500/20MG DAILY AT NIGHT
     Route: 048
     Dates: start: 20080801
  2. FUROSEMIDE [Concomitant]
     Indication: OEDEMA PERIPHERAL
     Route: 048
  3. FINASTERIDE [Concomitant]
     Indication: PROSTATOMEGALY
     Route: 048

REACTIONS (2)
  - PRURITUS [None]
  - SWELLING [None]
